FAERS Safety Report 11138328 (Version 2)
Quarter: 2015Q3

REPORT INFORMATION
  Report Type: Report from Study
  Country: US (occurrence: US)
  Receive Date: 20150526
  Receipt Date: 20150702
  Transmission Date: 20151125
  Serious: Yes (Other)
  Sender: FDA-Public Use
  Company Number: US-SA-2015SA069317

PATIENT
  Age: 70 Year
  Sex: Female

DRUGS (3)
  1. NEURONTIN [Concomitant]
     Active Substance: GABAPENTIN
  2. AUBAGIO [Suspect]
     Active Substance: TERIFLUNOMIDE
     Indication: MULTIPLE SCLEROSIS
     Route: 048
     Dates: start: 20150511, end: 20150609
  3. COPAXONE [Concomitant]
     Active Substance: GLATIRAMER ACETATE
     Indication: MULTIPLE SCLEROSIS
     Dates: start: 20100101, end: 20150510

REACTIONS (9)
  - Walking aid user [Unknown]
  - Central nervous system lesion [Unknown]
  - Burning sensation [Unknown]
  - Muscular weakness [Unknown]
  - Diarrhoea [Unknown]
  - Renal disorder [Unknown]
  - Fall [Unknown]
  - Shoulder operation [Unknown]
  - Nausea [Unknown]

NARRATIVE: CASE EVENT DATE: 20150513
